FAERS Safety Report 9705373 (Version 2)
Quarter: 2013Q4

REPORT INFORMATION
  Report Type: Report from Study
  Country: IT (occurrence: IT)
  Receive Date: 20131122
  Receipt Date: 20131206
  Transmission Date: 20140711
  Serious: Yes (Hospitalization)
  Sender: FDA-Public Use
  Company Number: IT-PFIZER INC-2013333193

PATIENT
  Sex: 0

DRUGS (6)
  1. RAMIPRIL [Suspect]
     Dosage: UNK
     Route: 065
  2. FUROSEMIDE [Interacting]
     Dosage: UNK
     Route: 065
  3. SERTRALINE HCL [Interacting]
     Dosage: UNK
     Route: 065
  4. TRAZODONE HYDROCHLORIDE [Interacting]
     Dosage: UNK
     Route: 065
  5. DIGOXIN [Interacting]
     Dosage: UNK
     Route: 065
  6. POTASSIUM CANRENOATE [Interacting]
     Dosage: UNK
     Route: 065

REACTIONS (2)
  - Drug interaction [Unknown]
  - Arrhythmia [Unknown]
